FAERS Safety Report 6435240-3 (Version None)
Quarter: 2009Q4

REPORT INFORMATION
  Report Type: 
  Country: None (occurrence: None)
  Receive Date: 20091110
  Receipt Date: 20090724
  Transmission Date: 20100525
  Serious: No
  Sender: FDA-Public Use
  Company Number: US-ABBOTT-09P-163-0587869-00

PATIENT
  Age: 40 Year
  Sex: Male

DRUGS (1)
  1. TARKA [Suspect]
     Indication: HYPERTENSION
     Route: 048
     Dates: end: 20090722

REACTIONS (3)
  - BRADYCARDIA [None]
  - FATIGUE [None]
  - HEART RATE IRREGULAR [None]
